FAERS Safety Report 9821144 (Version 2)
Quarter: 2013Q4

REPORT INFORMATION
  Report Type: Spontaneous
  Country: US (occurrence: None)
  Receive Date: 20131028
  Receipt Date: 20131028
  Transmission Date: 20140711
  Serious: Yes (Other)
  Sender: FDA-Public Use
  Company Number: 2013US001463

PATIENT
  Age: 81 Year
  Sex: Female
  Weight: 83 kg

DRUGS (4)
  1. ICLUSIG [Suspect]
     Indication: CHRONIC MYELOID LEUKAEMIA
     Route: 048
     Dates: end: 20130220
  2. VITAMIN D (VITAMIN D) [Concomitant]
  3. LOSARTAN (LOSARTAN) [Concomitant]
  4. ATORVASTATIN (ATORVASTATIN) [Concomitant]

REACTIONS (1)
  - Platelet count decreased [None]
